FAERS Safety Report 6476678-8 (Version None)
Quarter: 2009Q4

REPORT INFORMATION
  Report Type: 
  Country: None (occurrence: None)
  Receive Date: 20091204
  Receipt Date: 20091204
  Transmission Date: 20100525
  Serious: Yes (Hospitalization)
  Sender: FDA-Public Use
  Company Number: None

PATIENT
  Sex: Female
  Weight: 71.7 kg

DRUGS (7)
  1. CISPLATIN [Suspect]
     Dosage: 140 MG
  2. ERBITUX [Suspect]
     Dosage: 1206 MG
  3. FLUOROURACIL [Suspect]
     Dosage: 7320 MG
  4. ATIVAN [Concomitant]
  5. IV FLUIDS [Concomitant]
  6. KYTRIL [Concomitant]
  7. ZOFRAN [Concomitant]

REACTIONS (3)
  - NAUSEA [None]
  - URINARY TRACT INFECTION [None]
  - VOMITING [None]
